FAERS Safety Report 26164182 (Version 1)
Quarter: 2025Q4

REPORT INFORMATION
  Report Type: Spontaneous
  Country: US (occurrence: US)
  Receive Date: 20251216
  Receipt Date: 20251216
  Transmission Date: 20260117
  Serious: No
  Sender: SANOFI AVENTIS
  Company Number: US-SA-2025SA371512

PATIENT
  Sex: Female
  Weight: 64.14 kg

DRUGS (26)
  1. DUPIXENT [Suspect]
     Active Substance: DUPILUMAB
     Indication: Neurodermatitis
     Dosage: 600 MG, 1X
     Route: 058
  2. DUPIXENT [Suspect]
     Active Substance: DUPILUMAB
     Dosage: 300 MG, QOW
     Route: 058
  3. DUPIXENT [Suspect]
     Active Substance: DUPILUMAB
     Dosage: 300 MG, QW
     Route: 058
  4. PRIMAQUINE [Concomitant]
     Active Substance: PRIMAQUINE
  5. MAGNESIUM [Concomitant]
     Active Substance: MAGNESIUM
  6. CYSTEX [Concomitant]
     Active Substance: METHENAMINE\SODIUM SALICYLATE
  7. B12 ACTIVE [Concomitant]
  8. FEXOFENADINE HYDROCHLORIDE [Concomitant]
     Active Substance: FEXOFENADINE HYDROCHLORIDE
  9. CRANBERRY [Concomitant]
     Active Substance: CRANBERRY
  10. UBRELVY [Concomitant]
     Active Substance: UBROGEPANT
  11. TIZANIDINE HYDROCHLORIDE [Concomitant]
     Active Substance: TIZANIDINE HYDROCHLORIDE
  12. ONDANSETRON HYDROCHLORIDE [Concomitant]
     Active Substance: ONDANSETRON HYDROCHLORIDE
  13. PANTOPRAZOLE SODIUM [Concomitant]
     Active Substance: PANTOPRAZOLE SODIUM
  14. ESTRADIOL [Concomitant]
     Active Substance: ESTRADIOL
  15. FLUOXETINE HYDROCHLORIDE [Concomitant]
     Active Substance: FLUOXETINE HYDROCHLORIDE
  16. METFORMIN HYDROCHLORIDE [Concomitant]
     Active Substance: METFORMIN HYDROCHLORIDE
  17. HYDROXYZINE HYDROCHLORIDE [Concomitant]
     Active Substance: HYDROXYZINE HYDROCHLORIDE
  18. LORAZEPAM [Concomitant]
     Active Substance: LORAZEPAM
  19. PRAZOSIN HYDROCHLORIDE [Concomitant]
     Active Substance: PRAZOSIN HYDROCHLORIDE
  20. ATOMOXETINE HYDROCHLORIDE [Concomitant]
     Active Substance: ATOMOXETINE HYDROCHLORIDE
  21. PREGABALIN [Concomitant]
     Active Substance: PREGABALIN
  22. DIVALPROEX SODIUM [Concomitant]
     Active Substance: DIVALPROEX SODIUM
  23. ESZOPICLONE [Concomitant]
     Active Substance: ESZOPICLONE
  24. GLYCOPYRROLATE [Concomitant]
     Active Substance: GLYCOPYRROLATE
  25. XCOPRI [Concomitant]
     Active Substance: CENOBAMATE
  26. AJOVY [Concomitant]
     Active Substance: FREMANEZUMAB-VFRM

REACTIONS (3)
  - Bladder disorder [Unknown]
  - Urinary tract disorder [Unknown]
  - Inappropriate schedule of product administration [Unknown]
